FAERS Safety Report 4349155-8 (Version None)
Quarter: 2004Q2

REPORT INFORMATION
  Report Type: 
  Country: None (occurrence: None)
  Receive Date: 20040427
  Receipt Date: 20030610
  Transmission Date: 20050107
  Serious: No
  Sender: FDA-Public Use
  Company Number: 000564

PATIENT
  Age: 77 Year
  Sex: Female
  Weight: 62.6 kg

DRUGS (1)
  1. ZEVALIN [Suspect]
     Indication: NON-HODGKIN'S LYMPHOMA
     Dosage: 410 MG SINGLE INTRAVENOUS, 5MCI SINGLE INTRAVENOUS
     Route: 042
     Dates: start: 20030610, end: 20030610

REACTIONS (1)
  - HYPERSENSITIVITY [None]
